FAERS Safety Report 8475613-0 (Version None)
Quarter: 2012Q2

REPORT INFORMATION
  Report Type: 
  Country: None (occurrence: None)
  Receive Date: 20120628
  Receipt Date: 20120620
  Transmission Date: 20120825
  Serious: Yes (Hospitalization)
  Sender: FDA-Public Use
  Company Number: US-EISAI INC-E7389-02408-CLI-US

PATIENT
  Sex: Female
  Weight: 52 kg

DRUGS (9)
  1. EPIRUBICIN HYDROCHLORIDE [Suspect]
     Indication: BREAST CANCER
     Route: 041
     Dates: start: 20120201, end: 20120416
  2. PHENERGAN HCL [Concomitant]
     Indication: VOMITING
  3. LOPRESSOR [Concomitant]
     Indication: HYPERTENSION
     Route: 048
     Dates: start: 20120101
  4. MICRO-K [Concomitant]
     Route: 048
     Dates: start: 20120423
  5. HERCEPTIN [Suspect]
     Indication: BREAST CANCER
     Route: 041
     Dates: start: 20120201, end: 20120409
  6. SENOKOT [Concomitant]
     Indication: CONSTIPATION
     Route: 048
     Dates: start: 20120305
  7. CARBOPLATIN [Suspect]
     Indication: BREAST CANCER
     Route: 041
     Dates: start: 20120201, end: 20120409
  8. PHENERGAN HCL [Concomitant]
     Indication: NAUSEA
     Route: 048
     Dates: start: 20120203
  9. NEULASTA [Concomitant]
     Indication: NEUTROPENIA
     Route: 058
     Dates: start: 20120329, end: 20120417

REACTIONS (1)
  - RETROPERITONEAL FIBROSIS [None]
